FAERS Safety Report 20021936 (Version 1)
Quarter: 2021Q4

REPORT INFORMATION
  Report Type: Spontaneous
  Country: GB (occurrence: GB)
  Receive Date: 20211102
  Receipt Date: 20211102
  Transmission Date: 20220303
  Serious: Yes (Hospitalization)
  Sender: FDA-Public Use
  Company Number: GB-STRIDES ARCOLAB LIMITED-2021SP029321

PATIENT
  Age: 16 Year
  Sex: Female
  Weight: 57 kg

DRUGS (2)
  1. METRONIDAZOLE [Suspect]
     Active Substance: METRONIDAZOLE
     Indication: Drug therapy
     Dosage: 400 MILLIGRAM, TID, SCHEDULED FOR 5-DAYS, SYMPTOMS OF HEPATITIS WERE NOTED ON DAY 5 OF THERAPY
     Route: 065
  2. AMOXICILLIN [Concomitant]
     Active Substance: AMOXICILLIN
     Indication: Lower respiratory tract infection
     Dosage: 500 MILLIGRAM, TID
     Route: 065

REACTIONS (2)
  - Dehydration [Recovered/Resolved]
  - Hepatitis [Recovered/Resolved]
